FAERS Safety Report 13067482 (Version 1)
Quarter: 2016Q4

REPORT INFORMATION
  Report Type: Spontaneous
  Country: DE (occurrence: DE)
  Receive Date: 20161228
  Receipt Date: 20161228
  Transmission Date: 20170207
  Serious: Yes (Hospitalization, Other)
  Sender: FDA-Public Use
  Company Number: DE-IMPAX LABORATORIES, INC-2016-IPXL-02423

PATIENT
  Age: 70 Year
  Sex: Female

DRUGS (1)
  1. ADRENACLICK [Suspect]
     Active Substance: EPINEPHRINE
     Indication: PHARYNGEAL OEDEMA
     Dosage: 0.3 MG, UNK
     Route: 042

REACTIONS (1)
  - Stress cardiomyopathy [Unknown]
